FAERS Safety Report 18711389 (Version 1)
Quarter: 2021Q1

REPORT INFORMATION
  Report Type: Spontaneous
  Country: ES (occurrence: ES)
  Receive Date: 20210107
  Receipt Date: 20210107
  Transmission Date: 20210419
  Serious: Yes (Hospitalization)
  Sender: FDA-Public Use
  Company Number: ES-TEVA-2021-ES-1866122

PATIENT
  Sex: Male

DRUGS (1)
  1. AMOXICILINA/ACIDO CLAVULANICO TEVAGEN 500 MG/125 MG COMPRIMIDOS RECUBI [Suspect]
     Active Substance: AMOXICILLIN\CLAVULANIC ACID
     Dates: start: 202009

REACTIONS (1)
  - Hepatitis cholestatic [Recovered/Resolved]

NARRATIVE: CASE EVENT DATE: 202010
